FAERS Safety Report 12925226 (Version 2)
Quarter: 2016Q4

REPORT INFORMATION
  Report Type: Spontaneous
  Country: US (occurrence: US)
  Receive Date: 20161109
  Receipt Date: 20161207
  Transmission Date: 20170207
  Serious: Yes (Other)
  Sender: FDA-Public Use
  Company Number: US-INCYTE CORPORATION-2016IN006944

PATIENT
  Sex: Male

DRUGS (1)
  1. JAKAFI [Suspect]
     Active Substance: RUXOLITINIB
     Dosage: 5 MG, BID
     Route: 048
     Dates: start: 20160901

REACTIONS (6)
  - Splenomegaly [Unknown]
  - Decreased appetite [Unknown]
  - Fatigue [Unknown]
  - Pancytopenia [Unknown]
  - Weight increased [Unknown]
  - Contusion [Unknown]
